FAERS Safety Report 9789419 (Version 2)
Quarter: 2014Q1

REPORT INFORMATION
  Report Type: Report from Study
  Country: US (occurrence: US)
  Receive Date: 20131231
  Receipt Date: 20140113
  Transmission Date: 20141002
  Serious: Yes (Other)
  Sender: FDA-Public Use
  Company Number: US-ABBVIE-13P-163-1183578-00

PATIENT
  Age: 72 Year
  Sex: Female
  Weight: 64.47 kg

DRUGS (11)
  1. HUMIRA [Suspect]
     Indication: RHEUMATOID ARTHRITIS
     Dates: start: 20130913
  2. TEGRETOL [Suspect]
     Indication: PRODUCT USED FOR UNKNOWN INDICATION
  3. TEGRETOL [Suspect]
     Dosage: REDUCE TO ONE AND HALF TABLETS TWICE A DAY INSTEAD OF 2 TABLETS
  4. METHOTREXATE [Concomitant]
     Indication: RHEUMATOID ARTHRITIS
  5. BENICAR [Concomitant]
     Indication: HYPERTENSION
  6. HYDROCHLOROTHIAZIDE [Concomitant]
     Indication: HYPERTENSION
  7. AZOPT [Concomitant]
     Indication: GLAUCOMA
     Dosage: IN EACH EYE
  8. DORZOLAMIDE [Concomitant]
     Indication: GLAUCOMA
     Dosage: EACH EYE
  9. LATANOPROST [Concomitant]
     Indication: GLAUCOMA
     Dosage: EACH EYE AT BED TIME
  10. BRIMONIDINE [Concomitant]
     Indication: GLAUCOMA
     Dosage: IN LEFT EYE
  11. FOSAMAX [Concomitant]
     Indication: BONE DISORDER

REACTIONS (7)
  - Intraocular pressure increased [Recovered/Resolved]
  - Glaucoma [Recovered/Resolved]
  - Colitis [Recovered/Resolved]
  - Neuralgia [Unknown]
  - Injection site pain [Not Recovered/Not Resolved]
  - Injection site haemorrhage [Not Recovered/Not Resolved]
  - Haematochezia [Recovered/Resolved]
